FAERS Safety Report 6018972-0 (Version None)
Quarter: 2008Q4

REPORT INFORMATION
  Report Type: 
  Country: None (occurrence: None)
  Receive Date: 20081221
  Receipt Date: 20081221
  Transmission Date: 20090506
  Serious: Yes (Life-Threatening, Hospitalization)
  Sender: FDA-Public Use
  Company Number: None

PATIENT
  Age: 56 Year
  Sex: Male
  Weight: 171.4597 kg

DRUGS (1)
  1. AZITHROMYCIN [Suspect]
     Indication: BRONCHITIS
     Dosage: 250MG
     Dates: start: 20081030, end: 20081030

REACTIONS (6)
  - ABASIA [None]
  - BEDRIDDEN [None]
  - CARDIAC ARREST [None]
  - ILEUS [None]
  - INTESTINAL OBSTRUCTION [None]
  - OXYGEN SATURATION DECREASED [None]
